FAERS Safety Report 15825769 (Version 1)
Quarter: 2019Q1

REPORT INFORMATION
  Report Type: Spontaneous
  Country: CH (occurrence: CH)
  Receive Date: 20190115
  Receipt Date: 20190115
  Transmission Date: 20190417
  Serious: Yes (Hospitalization)
  Sender: FDA-Public Use
  Company Number: CH-TEVA-2019-CH-996796

PATIENT
  Age: 78 Year
  Sex: Female
  Weight: 58.1 kg

DRUGS (5)
  1. AMLODIPIN - MEPHA [Suspect]
     Active Substance: AMLODIPINE MESYLATE
     Dosage: THE DURATION OF DRUG TREATMENT WAS NOT DOCUMENTED.
     Route: 048
  2. COAPROVEL [Suspect]
     Active Substance: HYDROCHLOROTHIAZIDE\IRBESARTAN
     Dosage: THE DURATION OF DRUG TREATMENT WAS NOT DOCUMENTED.
     Route: 048
     Dates: end: 20180929
  3. CONCOR [Suspect]
     Active Substance: BISOPROLOL FUMARATE
     Dosage: THE DURATION OF DRUG TREATMENT WAS NOT DOCUMENTED.
     Route: 048
  4. ASPIRIN CARDIO [Suspect]
     Active Substance: ASPIRIN
     Indication: RETINAL ISCHAEMIA
     Route: 048
     Dates: start: 2016, end: 20180929
  5. ATORVASTATIN PFIZER [Concomitant]
     Active Substance: ATORVASTATIN
     Route: 048

REACTIONS (2)
  - Orthostatic hypotension [Recovered/Resolved]
  - Cerebral haemorrhage [Recovering/Resolving]

NARRATIVE: CASE EVENT DATE: 20180929
